FAERS Safety Report 4612261-4 (Version None)
Quarter: 2005Q1

REPORT INFORMATION
  Report Type: 
  Country: None (occurrence: None)
  Receive Date: 20050308
  Receipt Date: 20041119
  Transmission Date: 20050727
  Serious: Yes (Other)
  Sender: FDA-Public Use
  Company Number: 2004UW23800

PATIENT
  Age: 85 Year
  Sex: Female
  Weight: 63.502 kg

DRUGS (3)
  1. CRESTOR [Suspect]
     Indication: BLOOD CHOLESTEROL INCREASED
     Dosage: 10 MG DAILY PO
     Route: 048
     Dates: start: 20041115
  2. CLONIDINE [Concomitant]
  3. ASPIRIN [Concomitant]

REACTIONS (3)
  - HYPOAESTHESIA [None]
  - MYALGIA [None]
  - POLLAKIURIA [None]
